FAERS Safety Report 17418298 (Version 2)
Quarter: 2025Q3

REPORT INFORMATION
  Report Type: Spontaneous
  Country: US (occurrence: US)
  Receive Date: 20200214
  Receipt Date: 20250821
  Transmission Date: 20251020
  Serious: No
  Sender: UNITED THERAPEUTICS
  Company Number: US-UNITED THERAPEUTICS-UNT-2018-012841

PATIENT
  Sex: Female
  Weight: 110.66 kg

DRUGS (1)
  1. REMODULIN [Suspect]
     Active Substance: TREPROSTINIL
     Indication: Pulmonary arterial hypertension

REACTIONS (9)
  - Taste disorder [Unknown]
  - Parosmia [Unknown]
  - Influenza like illness [Unknown]
  - Pain in extremity [Unknown]
  - Pain in jaw [Unknown]
  - Infusion site pain [Unknown]
  - Diarrhoea [Not Recovered/Not Resolved]
  - Aversion [Not Recovered/Not Resolved]
  - Palpitations [Not Recovered/Not Resolved]
